FAERS Safety Report 9272821 (Version 1)
Quarter: 2013Q2

REPORT INFORMATION
  Report Type: Spontaneous
  Country: US (occurrence: US)
  Receive Date: 20130506
  Receipt Date: 20130506
  Transmission Date: 20140414
  Serious: No
  Sender: FDA-Public Use
  Company Number: US-ASTRAZENECA-2012SE29374

PATIENT
  Age: 21 Year
  Sex: Female

DRUGS (8)
  1. PRILOSEC OTC [Suspect]
     Route: 048
     Dates: start: 20070507
  2. PREVACID [Concomitant]
     Dates: start: 201202
  3. PROTONIX [Concomitant]
     Dates: start: 2007
  4. CARAFATE [Concomitant]
  5. TUMS [Concomitant]
  6. ZANTAC [Concomitant]
  7. PEPCID [Concomitant]
  8. PEPTOBISMOL [Concomitant]

REACTIONS (5)
  - Oesophagitis [Unknown]
  - Oesophageal stenosis [Unknown]
  - Gastric disorder [Unknown]
  - Drug hypersensitivity [Unknown]
  - Drug ineffective [Unknown]
